FAERS Safety Report 12146121 (Version 1)
Quarter: 2016Q1

REPORT INFORMATION
  Report Type: Spontaneous
  Country: US (occurrence: US)
  Receive Date: 20160304
  Receipt Date: 20160304
  Transmission Date: 20160526
  Serious: No
  Sender: FDA-Public Use
  Company Number: US-PERRIGO-15US011406

PATIENT
  Age: 63 Year
  Sex: Female
  Weight: 104.31 kg

DRUGS (3)
  1. LISINOPRIL. [Concomitant]
     Active Substance: LISINOPRIL
     Indication: HYPERTENSION
     Dosage: UNK
     Route: 065
     Dates: start: 2013
  2. NAPROXEN 220 MG 140 [Suspect]
     Active Substance: NAPROXEN
     Indication: PAIN
     Dosage: 220 MG, TID
     Route: 048
     Dates: start: 2007, end: 2014
  3. NAPROXEN 220 MG 140 [Suspect]
     Active Substance: NAPROXEN
     Dosage: 220 MG, TID
     Route: 048
     Dates: start: 20151023, end: 20151028

REACTIONS (3)
  - Dyspepsia [Recovered/Resolved]
  - Incorrect drug administration duration [Recovered/Resolved]
  - Expired product administered [Recovered/Resolved]

NARRATIVE: CASE EVENT DATE: 2007
